FAERS Safety Report 23205540 (Version 3)
Quarter: 2024Q1

REPORT INFORMATION
  Report Type: Spontaneous
  Country: US (occurrence: US)
  Receive Date: 20231120
  Receipt Date: 20240108
  Transmission Date: 20240410
  Serious: No
  Sender: FDA-Public Use
  Company Number: US-PFIZER INC-202300380990

PATIENT
  Age: 74 Year
  Sex: Female
  Weight: 61.678 kg

DRUGS (9)
  1. METHYLPREDNISOLONE [Suspect]
     Active Substance: METHYLPREDNISOLONE
     Indication: Lip swelling
     Dosage: 4 MG (21 PACK)
     Dates: start: 2023
  2. METHYLPREDNISOLONE [Suspect]
     Active Substance: METHYLPREDNISOLONE
     Indication: Joint swelling
  3. METHYLPREDNISOLONE [Suspect]
     Active Substance: METHYLPREDNISOLONE
     Indication: Skin disorder
  4. VALACYCLOVIR [Suspect]
     Active Substance: VALACYCLOVIR HYDROCHLORIDE
     Indication: Lip swelling
     Dosage: 1 G
     Dates: start: 2023
  5. VALACYCLOVIR [Suspect]
     Active Substance: VALACYCLOVIR HYDROCHLORIDE
     Indication: Joint swelling
  6. VALACYCLOVIR [Suspect]
     Active Substance: VALACYCLOVIR HYDROCHLORIDE
     Indication: Skin disorder
  7. DIPHENHYDRAMINE HYDROCHLORIDE\HYDROCORTISONE\NYSTATIN [Suspect]
     Active Substance: DIPHENHYDRAMINE HYDROCHLORIDE\HYDROCORTISONE\NYSTATIN
     Indication: Lip swelling
     Dosage: UNK
     Dates: start: 2023
  8. DIPHENHYDRAMINE HYDROCHLORIDE\HYDROCORTISONE\NYSTATIN [Suspect]
     Active Substance: DIPHENHYDRAMINE HYDROCHLORIDE\HYDROCORTISONE\NYSTATIN
     Indication: Joint swelling
  9. DIPHENHYDRAMINE HYDROCHLORIDE\HYDROCORTISONE\NYSTATIN [Suspect]
     Active Substance: DIPHENHYDRAMINE HYDROCHLORIDE\HYDROCORTISONE\NYSTATIN
     Indication: Skin disorder

REACTIONS (1)
  - Drug ineffective [Not Recovered/Not Resolved]

NARRATIVE: CASE EVENT DATE: 20230922
